FAERS Safety Report 20479454 (Version 1)
Quarter: 2022Q1

REPORT INFORMATION
  Report Type: Spontaneous
  Country: US (occurrence: None)
  Receive Date: 20220215
  Receipt Date: 20220215
  Transmission Date: 20220424
  Serious: Yes (Death)
  Sender: FDA-Public Use
  Company Number: None

PATIENT
  Age: 87 Year
  Sex: Female
  Weight: 70.8 kg

DRUGS (7)
  1. FLUOROURACIL [Suspect]
     Active Substance: FLUOROURACIL
     Indication: Anaemia
     Dosage: OTHER FREQUENCY : ONCE EVERY 2 WEEKS;?
     Route: 042
  2. FLUOROURACIL [Suspect]
     Active Substance: FLUOROURACIL
     Indication: Anaemia
     Dosage: OTHER FREQUENCY : EVERY 2 WEEKS;?
     Route: 042
  3. LEUCOVORIN [Concomitant]
     Active Substance: LEUCOVORIN
  4. CETIRIZINE [Concomitant]
     Active Substance: CETIRIZINE HYDROCHLORIDE
  5. FAMOTIDINE [Concomitant]
     Active Substance: FAMOTIDINE
  6. ACETAMINOPHEN [Concomitant]
     Active Substance: ACETAMINOPHEN
  7. VITAMINS [Concomitant]
     Active Substance: VITAMINS

REACTIONS (1)
  - Death [None]

NARRATIVE: CASE EVENT DATE: 20220212
